FAERS Safety Report 7888587 (Version 5)
Quarter: 2013Q2

REPORT INFORMATION
  Report Type: Report from Study
  Country: US (occurrence: US)
  Receive Date: 20110407
  Receipt Date: 20130409
  Transmission Date: 20140414
  Serious: Yes (Hospitalization)
  Sender: FDA-Public Use
  Company Number: US-TEVA-274100USA

PATIENT
  Age: 71 Year
  Sex: Female
  Weight: 65 kg

DRUGS (30)
  1. LEUCOVORIN CALCIUM [Suspect]
     Indication: NEOPLASM
     Dosage: ON DAY 1 OF EACH 28 DAY CYCLE
     Route: 042
     Dates: start: 20110110
  2. FLUOROURACIL [Suspect]
     Indication: NEOPLASM
     Dosage: 46 HR INFUSION ON DAY 1, 15 OF EACH 28 DAY CYCLE
     Route: 042
     Dates: start: 20110110
  3. FOLINIC ACID [Suspect]
     Indication: NEOPLASM
     Route: 042
     Dates: start: 20110110
  4. VELIPARIB [Suspect]
     Indication: NEOPLASM
     Dosage: 160 MILLIGRAM DAILY; DAYS 15-19 IN CYCLE 1, DAYS 1-5, 15-19 OF EACH SUBSEQUENT CYCLE
     Route: 048
     Dates: start: 20110124, end: 20110311
  5. IRINOTECAN [Suspect]
     Indication: NEOPLASM
     Dosage: ON DAY 1 OF EACH 28 DAY CYCLE
     Route: 042
     Dates: start: 20110110
  6. SILICON DIOXIDE W/SIMETICONE [Concomitant]
     Indication: FLATULENCE
     Dates: start: 20110110
  7. ENOXAPARIN SODIUM [Concomitant]
     Indication: PULMONARY EMBOLISM
     Dosage: 100 MILLIGRAM DAILY;
     Dates: start: 20090928, end: 20110328
  8. ENOXAPARIN SODIUM [Concomitant]
     Indication: DEEP VEIN THROMBOSIS
     Dosage: 120 MILLIGRAM DAILY;
     Dates: start: 20110328
  9. DOCOSANOL [Concomitant]
     Indication: STOMATITIS
     Dates: start: 20110126
  10. ESOMEPRAZOLE MAGNESIUM [Concomitant]
     Indication: GASTROOESOPHAGEAL REFLUX DISEASE
     Dosage: 1 DOSAGE FORMS DAILY;
  11. INSULIN DETEMIR [Concomitant]
     Indication: DIABETES MELLITUS
     Dosage: 30 UNIT
     Dates: start: 20081215
  12. NOVOFINE [Concomitant]
     Indication: DIABETES MELLITUS
     Dosage: 32G X 6 MM
     Dates: start: 20081215
  13. INSULIN ASPART [Concomitant]
     Indication: DIABETES MELLITUS
     Dosage: 100 UNIT/ML
     Dates: start: 20090605
  14. ROSUVASTATIN CALCIUM [Concomitant]
     Indication: HYPERCHOLESTEROLAEMIA
     Dosage: 20 MILLIGRAM DAILY;
  15. LEVOTHYROXINE SODIUM [Concomitant]
     Indication: HYPOTHYROIDISM
     Dosage: 100 MICROGRAM DAILY;
  16. OXYCODONE/APAP [Concomitant]
     Indication: BACK PAIN
     Dosage: 5/325MG
  17. FENTANYL [Concomitant]
     Indication: BACK PAIN
     Route: 062
     Dates: start: 20101228
  18. ACETYLSALICYLIC ACID [Concomitant]
     Dosage: 325 MILLIGRAM DAILY;
  19. CALCIUM D3 [Concomitant]
     Indication: MEDICAL DIET
     Dosage: 1 TABLET DAILY;
  20. PANCREATIN [Concomitant]
     Indication: MEDICAL DIET
  21. PRASUGREL HYDROCHLORIDE [Concomitant]
     Indication: CORONARY ARTERY DISEASE
     Dosage: 10 MILLIGRAM DAILY;
  22. FISH OIL [Concomitant]
     Indication: MEDICAL DIET
     Dosage: 1000 MILLIGRAM DAILY;
  23. MULTIVITAMIN [Concomitant]
     Indication: MEDICAL DIET
     Dosage: 1 TABLET DAILY;
  24. GLYCERYL TRINITRATE [Concomitant]
     Indication: CORONARY ARTERY DISEASE
     Route: 060
  25. COLECALCIFEROL [Concomitant]
     Indication: MEDICAL DIET
     Dosage: 1000 UNITS
  26. ALPHA-D-GALACTOSIDASE [Concomitant]
     Indication: FLATULENCE
     Dates: start: 20110110
  27. MILK THISTLE [Concomitant]
     Indication: MEDICAL DIET
     Dosage: 200 MILLIGRAM DAILY;
     Dates: start: 20110205
  28. L-GLUTATHIONE [Concomitant]
     Indication: MEDICAL DIET
     Dosage: 50 MILLIGRAM DAILY;
     Dates: start: 20110205
  29. LOPERAMIDE HYDROCHLORIDE [Concomitant]
     Indication: DIARRHOEA
     Dosage: 1-2 TABLETS
     Dates: start: 20110221
  30. MAGIC MOUTHWASH [Concomitant]
     Indication: STOMATITIS
     Dates: start: 20110228

REACTIONS (1)
  - Pyrexia [Recovered/Resolved]
